FAERS Safety Report 13094290 (Version 1)
Quarter: 2017Q1

REPORT INFORMATION
  Report Type: Spontaneous
  Country: BE (occurrence: BE)
  Receive Date: 20170106
  Receipt Date: 20170106
  Transmission Date: 20170428
  Serious: Yes (Hospitalization)
  Sender: FDA-Public Use
  Company Number: BE-009507513-1612BEL015174

PATIENT
  Age: 90 Year
  Sex: Female

DRUGS (10)
  1. PANTOPRAZOLE [Concomitant]
     Active Substance: PANTOPRAZOLE SODIUM
     Indication: GASTRIC DISORDER
     Dosage: 20 MG, DAILY
  2. TIAPRIDAL [Concomitant]
     Active Substance: TIAPRIDE HYDROCHLORIDE
     Dosage: UNK, PRN
  3. REMERGON [Suspect]
     Active Substance: MIRTAZAPINE
     Dosage: 15 MG, DAILY
     Route: 048
     Dates: end: 201612
  4. D-CURE [Concomitant]
     Dosage: UNK
  5. DIOVAN [Concomitant]
     Active Substance: VALSARTAN
     Indication: HYPERTENSION
     Dosage: TABLET 160 MG/80 MG, DAILY
     Route: 048
     Dates: start: 2006
  6. NOBITEN [Concomitant]
     Active Substance: NEBIVOLOL
     Indication: HYPERTENSION
     Dosage: 2.5 MG, DAILY
  7. DAFALGAN [Concomitant]
     Active Substance: ACETAMINOPHEN
     Dosage: 500 MG, 4X/ DAY
  8. ZITROMAX [Suspect]
     Active Substance: AZITHROMYCIN
     Indication: LUNG INFECTION
     Dosage: UNK, BID
     Dates: start: 20161125, end: 20161130
  9. FOLAVIT [Concomitant]
     Indication: MALNUTRITION
     Dosage: 4 MG, DAILY
  10. NOVALGIN [Concomitant]
     Active Substance: METAMIZOLE SODIUM
     Dosage: UNK, PRN

REACTIONS (1)
  - Inappropriate antidiuretic hormone secretion [Recovered/Resolved]

NARRATIVE: CASE EVENT DATE: 20161208
